FAERS Safety Report 16305726 (Version 1)
Quarter: 2019Q2

REPORT INFORMATION
  Report Type: Spontaneous
  Country: US (occurrence: US)
  Receive Date: 20190513
  Receipt Date: 20190513
  Transmission Date: 20190711
  Serious: No
  Sender: FDA-Public Use
  Company Number: US-BAYER-2019-094279

PATIENT
  Sex: Male

DRUGS (3)
  1. CLARITIN [Suspect]
     Active Substance: LORATADINE
     Indication: TINNITUS
     Dosage: UNK
     Route: 048
  2. NASAL SPRAY II [Concomitant]
     Dosage: UNK
  3. CLARITIN [Suspect]
     Active Substance: LORATADINE
     Indication: NASAL CONGESTION

REACTIONS (1)
  - Circumstance or information capable of leading to medication error [Unknown]
